FAERS Safety Report 6341356-2 (Version None)
Quarter: 2009Q3

REPORT INFORMATION
  Report Type: 
  Country: None (occurrence: None)
  Receive Date: 20090904
  Receipt Date: 20090901
  Transmission Date: 20100115
  Serious: Yes (Death, Hospitalization)
  Sender: FDA-Public Use
  Company Number: PHHY2009NO37297

PATIENT
  Sex: Female

DRUGS (7)
  1. LEPONEX [Suspect]
     Indication: SCHIZOPHRENIA
     Dosage: 125 MG, QD
     Route: 048
     Dates: start: 19990101, end: 20090223
  2. METFORMIN HCL [Concomitant]
     Indication: TYPE 2 DIABETES MELLITUS
     Dosage: 100 MG, TID
     Route: 048
     Dates: start: 19990101, end: 20090101
  3. LEVOTHYROXINE [Concomitant]
     Dosage: 100 MG, QD
  4. GARAMYCIN [Concomitant]
     Indication: TYPE 2 DIABETES MELLITUS
     Dosage: UNK
     Dates: start: 20090201
  5. SOLU-CORTEF [Concomitant]
     Dosage: 100 MG, ONCE/SINGLE
     Dates: start: 20090201
  6. INSULIN HUMAN [Concomitant]
     Dosage: UNK
     Dates: start: 20020201
  7. LEVOTHYROXINE SODIUM [Concomitant]
     Indication: HYPOTHYROIDISM
     Dosage: 100 MCG/DAY
     Route: 048

REACTIONS (21)
  - ANTIPSYCHOTIC DRUG LEVEL INCREASED [None]
  - ARTERIAL STENOSIS [None]
  - ARTERIAL THROMBOSIS [None]
  - ASTHENIA [None]
  - ATRIOVENTRICULAR BLOCK COMPLETE [None]
  - CARDIAC ARREST [None]
  - CARDIAC FAILURE [None]
  - CARDIAC PACEMAKER MALFUNCTION [None]
  - CIRCULATORY COLLAPSE [None]
  - CONDITION AGGRAVATED [None]
  - CORONARY ARTERY STENOSIS [None]
  - CORONARY ARTERY THROMBOSIS [None]
  - HYPERKALAEMIA [None]
  - HYPOTENSION [None]
  - METABOLIC ACIDOSIS [None]
  - MYOCARDIAL INFARCTION [None]
  - PLEURAL EFFUSION [None]
  - RENAL FAILURE ACUTE [None]
  - SEPTIC SHOCK [None]
  - SHOCK [None]
  - UTERINE NEOPLASM [None]
